FAERS Safety Report 16428785 (Version 1)
Quarter: 2019Q2

REPORT INFORMATION
  Report Type: Spontaneous
  Country: US (occurrence: US)
  Receive Date: 20190507
  Receipt Date: 20190507
  Transmission Date: 20190711
  Serious: No
  Sender: FDA-Public Use
  Company Number: None

PATIENT
  Sex: Male

DRUGS (1)
  1. TEMOZOLOMIDE 250MG  SANDOZ [Suspect]
     Active Substance: TEMOZOLOMIDE
     Route: 048
     Dates: start: 20190122

REACTIONS (4)
  - Nausea [None]
  - Fatigue [None]
  - Alopecia [None]
  - Constipation [None]
